FAERS Safety Report 12471826 (Version 1)
Quarter: 2016Q2

REPORT INFORMATION
  Report Type: Spontaneous
  Country: GB (occurrence: GB)
  Receive Date: 20160616
  Receipt Date: 20160616
  Transmission Date: 20160815
  Serious: Yes (Other)
  Sender: FDA-Public Use
  Company Number: GB-WATSON-2016-12229

PATIENT
  Age: 9 Year
  Sex: Male
  Weight: 28.58 kg

DRUGS (1)
  1. DESMOPRESSIN (UNKNOWN) [Suspect]
     Active Substance: DESMOPRESSIN
     Indication: ENURESIS
     Dosage: 200 ?G, UNK
     Route: 048

REACTIONS (4)
  - Personality change [Recovering/Resolving]
  - Crying [Recovering/Resolving]
  - Mood altered [Recovering/Resolving]
  - Emotional disorder [Recovering/Resolving]
